FAERS Safety Report 15552532 (Version 4)
Quarter: 2018Q4

REPORT INFORMATION
  Report Type: Spontaneous
  Country: US (occurrence: US)
  Receive Date: 20181025
  Receipt Date: 20181203
  Transmission Date: 20190205
  Serious: Yes (Hospitalization)
  Sender: FDA-Public Use
  Company Number: US-ACTELION-A-NJ2018-180623

PATIENT
  Age: 93 Year
  Sex: Female
  Weight: 53.61 kg

DRUGS (6)
  1. UPTRAVI [Suspect]
     Active Substance: SELEXIPAG
     Dosage: 1400 MCG, BID
     Route: 048
  2. FERROUS SULFATE. [Concomitant]
     Active Substance: FERROUS SULFATE
  3. UPTRAVI [Suspect]
     Active Substance: SELEXIPAG
     Indication: PULMONARY ARTERIAL HYPERTENSION
     Dosage: 1600 MCG, BID
     Route: 048
     Dates: start: 201809
  4. ADCIRCA [Concomitant]
     Active Substance: TADALAFIL
  5. OPSUMIT [Suspect]
     Active Substance: MACITENTAN
     Indication: PULMONARY ARTERIAL HYPERTENSION
     Dosage: 10 MG, QD
     Route: 048
     Dates: start: 20150327
  6. CLONAZEPAM. [Concomitant]
     Active Substance: CLONAZEPAM

REACTIONS (18)
  - Rectal haemorrhage [Recovered/Resolved]
  - Diverticulitis [Unknown]
  - Weight decreased [Unknown]
  - Anal polyp [Unknown]
  - Haemorrhoids [Recovered/Resolved]
  - Anxiety [Unknown]
  - Anaemia [Recovered/Resolved]
  - Pulmonary congestion [Recovered/Resolved]
  - Chronic obstructive pulmonary disease [Recovered/Resolved]
  - Cough [Recovered/Resolved]
  - Decreased appetite [Unknown]
  - Haemorrhoid operation [Recovered/Resolved]
  - Packed red blood cell transfusion [Recovered/Resolved]
  - Dyspnoea exertional [Recovered/Resolved]
  - Condition aggravated [Recovered/Resolved]
  - Haemorrhage [Unknown]
  - Dyspnoea [Unknown]
  - Haemoglobin decreased [Recovered/Resolved]

NARRATIVE: CASE EVENT DATE: 20181012
